FAERS Safety Report 25099522 (Version 1)
Quarter: 2025Q1

REPORT INFORMATION
  Report Type: Spontaneous
  Country: CL (occurrence: ES)
  Receive Date: 20250320
  Receipt Date: 20250320
  Transmission Date: 20250409
  Serious: Yes (Congenital Anomaly, Other)
  Sender: PFIZER
  Company Number: ES-Desitin-2025-00520

PATIENT
  Sex: Female

DRUGS (6)
  1. LEVETIRACETAM [Suspect]
     Active Substance: LEVETIRACETAM
     Indication: Epilepsy
     Dosage: BEFORE AND DURING PREGNANCY
     Route: 064
  2. LAMOTRIGINE [Suspect]
     Active Substance: LAMOTRIGINE
     Indication: Epilepsy
     Dosage: BEFORE AND DURING PREGNANCY
     Route: 064
  3. CLOBAZAM [Suspect]
     Active Substance: CLOBAZAM
     Indication: Epilepsy
     Dosage: AT WEEK 26 OF GESTATION
     Route: 064
  4. LEVOTHYROXINE [Suspect]
     Active Substance: LEVOTHYROXINE
     Indication: Hypothyroidism
     Dosage: 25 UG, 1X/DAY
     Route: 064
  5. FOLIC ACID [Suspect]
     Active Substance: FOLIC ACID
     Dosage: FROM 1ST WEEK OF PREGNANCY
     Route: 064
  6. FOLIC ACID [Suspect]
     Active Substance: FOLIC ACID
     Dosage: FROM WEEK 20
     Route: 064

REACTIONS (2)
  - Maternal exposure timing unspecified [Unknown]
  - Anorectal malformation [Unknown]
